FAERS Safety Report 5898103-8 (Version None)
Quarter: 2008Q3

REPORT INFORMATION
  Report Type: 
  Country: None (occurrence: None)
  Receive Date: 20080925
  Receipt Date: 20080715
  Transmission Date: 20090109
  Serious: No
  Sender: FDA-Public Use
  Company Number: US-BAYER-200828783NA

PATIENT
  Age: 41 Year
  Sex: Female

DRUGS (4)
  1. YASMIN [Suspect]
     Indication: CONTRACEPTION
     Route: 048
     Dates: end: 20080615
  2. THEOPHYLLINE [Concomitant]
  3. ALBUTEROL [Concomitant]
  4. INHALER FOR ASTHMA [Concomitant]
     Indication: ASTHMA

REACTIONS (5)
  - ABDOMINAL DISTENSION [None]
  - FEELING ABNORMAL [None]
  - MENSTRUATION DELAYED [None]
  - NAUSEA [None]
  - PAROSMIA [None]
